FAERS Safety Report 17840862 (Version 1)
Quarter: 2020Q2

REPORT INFORMATION
  Report Type: Spontaneous
  Country: IE (occurrence: IE)
  Receive Date: 20200529
  Receipt Date: 20200529
  Transmission Date: 20200714
  Serious: Yes (Hospitalization)
  Sender: FDA-Public Use
  Company Number: IE-PFIZER INC-2020202292

PATIENT
  Age: 62 Year
  Sex: Male

DRUGS (4)
  1. TESTOSTERONE. [Suspect]
     Active Substance: TESTOSTERONE
     Indication: MUSCLE MASS
  2. TESTOSTERONE. [Suspect]
     Active Substance: TESTOSTERONE
     Indication: LIBIDO DECREASED
     Dosage: UNK
  3. SOMATROPIN. [Suspect]
     Active Substance: SOMATROPIN
     Indication: MUSCLE MASS
     Dosage: UNK
  4. SOMATROPIN. [Suspect]
     Active Substance: SOMATROPIN
     Indication: LIBIDO DECREASED

REACTIONS (3)
  - Drug abuse [Unknown]
  - Hyperglycaemic hyperosmolar nonketotic syndrome [Unknown]
  - Type 2 diabetes mellitus [Unknown]
